FAERS Safety Report 7193883-6 (Version None)
Quarter: 2010Q4

REPORT INFORMATION
  Report Type: 
  Country: None (occurrence: None)
  Receive Date: 20101223
  Receipt Date: 20101220
  Transmission Date: 20110411
  Serious: Yes (Hospitalization, Other)
  Sender: FDA-Public Use
  Company Number: AU-US-EMD SERONO, INC.-7031733

PATIENT
  Sex: Female

DRUGS (4)
  1. REBIF [Suspect]
     Indication: PRODUCT USED FOR UNKNOWN INDICATION
     Route: 058
     Dates: start: 20091101, end: 20101206
  2. DITROPAN [Concomitant]
  3. BACLOFEN [Concomitant]
  4. FRUSEMIDE [Concomitant]

REACTIONS (4)
  - BLISTER [None]
  - FOCAL SEGMENTAL GLOMERULOSCLEROSIS [None]
  - NEPHROTIC SYNDROME [None]
  - OEDEMA PERIPHERAL [None]
